FAERS Safety Report 8078501-7 (Version None)
Quarter: 2012Q1

REPORT INFORMATION
  Report Type: 
  Country: None (occurrence: None)
  Receive Date: 20120127
  Receipt Date: 20110111
  Transmission Date: 20120608
  Serious: Yes (Hospitalization)
  Sender: FDA-Public Use
  Company Number: US-ABBOTT-10P-163-0678290-00

PATIENT
  Sex: Female
  Weight: 69.008 kg

DRUGS (11)
  1. IMURAN [Concomitant]
     Indication: CROHN'S DISEASE
     Route: 048
  2. FENTANYL [Concomitant]
     Indication: ABDOMINAL PAIN
  3. ONDANSETRON HCL [Concomitant]
     Indication: NAUSEA
  4. FENTANYL [Concomitant]
     Indication: PAIN
  5. HUMIRA [Suspect]
     Indication: CROHN'S DISEASE
     Dosage: WILL BE CONTINUING WITH 2ND LOADING DOSE ON 15 OCT 2010, AND THEN 40MG EOW.
     Dates: start: 20101001, end: 20101001
  6. IRON [Concomitant]
     Indication: PRODUCT USED FOR UNKNOWN INDICATION
  7. FENTANYL [Concomitant]
     Indication: CROHN'S DISEASE
     Dosage: PATCH CHANGED Q72HRS.
     Route: 061
     Dates: start: 20101012
  8. HUMIRA [Suspect]
     Route: 058
  9. MULTI-VITAMIN [Concomitant]
     Indication: PRODUCT USED FOR UNKNOWN INDICATION
     Route: 048
  10. HYDROCODONE [Concomitant]
     Indication: PAIN MANAGEMENT
  11. FOLIC ACID [Concomitant]
     Indication: PRODUCT USED FOR UNKNOWN INDICATION
     Route: 048

REACTIONS (5)
  - RECTAL DISCHARGE [None]
  - ABDOMINAL PAIN [None]
  - INJECTION SITE PAIN [None]
  - ANXIETY [None]
  - CROHN'S DISEASE [None]
